FAERS Safety Report 14290615 (Version 2)
Quarter: 2018Q3

REPORT INFORMATION
  Report Type: Report from Study
  Country: CA (occurrence: CA)
  Receive Date: 20171215
  Receipt Date: 20180713
  Transmission Date: 20181010
  Serious: Yes (Other)
  Sender: FDA-Public Use
  Company Number: CA-JNJFOC-20171215062

PATIENT
  Sex: Male
  Weight: 58.5 kg

DRUGS (1)
  1. REMICADE [Suspect]
     Active Substance: INFLIXIMAB
     Indication: COLITIS ULCERATIVE
     Dosage: STRENGTH = 300 MG
     Route: 042
     Dates: start: 20130722

REACTIONS (2)
  - Pain in extremity [Unknown]
  - Gastrointestinal carcinoma [Unknown]
